FAERS Safety Report 11663934 (Version 2)
Quarter: 2015Q4

REPORT INFORMATION
  Report Type: Report from Study
  Country: US (occurrence: US)
  Receive Date: 20151027
  Receipt Date: 20151029
  Transmission Date: 20160304
  Serious: Yes (Hospitalization)
  Sender: FDA-Public Use
  Company Number: PHEH2014US018441

PATIENT
  Sex: Female
  Weight: 58.5 kg

DRUGS (2)
  1. EXJADE [Suspect]
     Active Substance: DEFERASIROX
     Indication: SICKLE CELL ANAEMIA
     Dosage: 2000 MG, QD,  MIX AND DRINK FOUR TABLETS DAILY
     Route: 048
     Dates: start: 20080414
  2. EXJADE [Suspect]
     Active Substance: DEFERASIROX
     Indication: IRON METABOLISM DISORDER

REACTIONS (3)
  - Diarrhoea [Unknown]
  - Skin irritation [Unknown]
  - Dehydration [Unknown]
